FAERS Safety Report 6177840-4 (Version None)
Quarter: 2009Q2

REPORT INFORMATION
  Report Type: 
  Country: None (occurrence: None)
  Receive Date: 20090504
  Receipt Date: 20090427
  Transmission Date: 20091009
  Serious: Yes (Other)
  Sender: FDA-Public Use
  Company Number: US-ELI_LILLY_AND_COMPANY-US200904006677

PATIENT
  Age: 13 Year
  Sex: Male

DRUGS (1)
  1. HUMATROPE [Suspect]
     Indication: BODY HEIGHT BELOW NORMAL
     Dosage: UNK, UNKNOWN
     Route: 058
     Dates: start: 20020101, end: 20090427

REACTIONS (3)
  - EPIPHYSEAL FRACTURE [None]
  - EPIPHYSIOLYSIS [None]
  - INJURY [None]
